FAERS Safety Report 7706265-2 (Version None)
Quarter: 2011Q3

REPORT INFORMATION
  Report Type: 
  Country: None (occurrence: None)
  Receive Date: 20110824
  Receipt Date: 20110818
  Transmission Date: 20111222
  Serious: Yes (Hospitalization)
  Sender: FDA-Public Use
  Company Number: BE-ROCHE-792528

PATIENT
  Sex: Female
  Weight: 96 kg

DRUGS (8)
  1. TOCILIZUMAB [Suspect]
     Indication: RHEUMATOID ARTHRITIS
     Dosage: LAST DOSE PRIOR TO SAE: 05 JUL 2011 DOSE FORM: INFUSION
     Route: 042
     Dates: start: 20070220
  2. FOLIC ACID [Concomitant]
     Dates: start: 20020718
  3. METHOTREXATE [Concomitant]
     Dosage: TDD: 15 OS
     Dates: start: 20020915
  4. OMEPRAZOLE [Concomitant]
  5. BISOPROLOL FUMARATE AND HYDROCHLOROTHIAZIDE [Concomitant]
     Dosage: DRUG: LODOZ 1 TABLET
  6. D-CURE [Concomitant]
     Dosage: 1 AMP AS REQUIRED
     Dates: start: 20110215
  7. TOCILIZUMAB [Suspect]
     Dosage: THE PATIENT WAS PREVIOUSLY ENROLLED IN WA18062.
     Route: 042
  8. MEDROL [Concomitant]
     Dates: start: 20060117

REACTIONS (1)
  - MYOCARDIAL INFARCTION [None]
